FAERS Safety Report 15690379 (Version 1)
Quarter: 2018Q4

REPORT INFORMATION
  Report Type: Spontaneous
  Country: US (occurrence: US)
  Receive Date: 20181205
  Receipt Date: 20181205
  Transmission Date: 20190205
  Serious: No
  Sender: FDA-Public Use
  Company Number: US-PFIZER INC-2018500294

PATIENT
  Age: 80 Year
  Sex: Male

DRUGS (1)
  1. SOMAVERT [Suspect]
     Active Substance: PEGVISOMANT
     Dosage: 15 MG, DAILY
     Dates: start: 20160318

REACTIONS (7)
  - Blood calcium decreased [Unknown]
  - Albumin globulin ratio decreased [Unknown]
  - Blood glucose increased [Unknown]
  - Blood sodium decreased [Unknown]
  - Blood chloride decreased [Unknown]
  - Blood potassium decreased [Unknown]
  - Blood alkaline phosphatase increased [Unknown]
